FAERS Safety Report 8943646 (Version 1)
Quarter: 2012Q4

REPORT INFORMATION
  Report Type: Report from Study
  Country: US (occurrence: US)
  Receive Date: 20121203
  Receipt Date: 20121203
  Transmission Date: 20130627
  Serious: Yes (Hospitalization)
  Sender: FDA-Public Use
  Company Number: US-BAXTER-2012BAX025361

PATIENT
  Age: 33 Year
  Sex: Female
  Weight: 93.4 kg

DRUGS (19)
  1. CYTOXAN [Suspect]
     Indication: BREAST CANCER
     Route: 042
     Dates: start: 20080708, end: 20080804
  2. BEVACIZUMAB [Suspect]
     Indication: BREAST CANCER
     Route: 042
     Dates: start: 20080708
  3. BEVACIZUMAB [Suspect]
     Route: 042
     Dates: start: 20080804
  4. ADRIAMYCIN [Suspect]
     Route: 042
     Dates: start: 20080708, end: 20080804
  5. ADRIAMYCIN [Suspect]
     Route: 042
     Dates: start: 20080819
  6. ATIVAN [Concomitant]
     Indication: DRUG USE FOR UNKNOWN INDICATION
     Route: 065
     Dates: start: 20080622
  7. ATIVAN [Concomitant]
     Route: 065
     Dates: start: 20080725, end: 20080725
  8. ZOFRAN [Concomitant]
     Indication: DRUG USE FOR UNKNOWN INDICATION
     Route: 065
     Dates: start: 20080722
  9. ZOFRAN [Concomitant]
     Route: 065
     Dates: start: 20080725, end: 20080811
  10. MOTRIN [Concomitant]
     Indication: DRUG USE FOR UNKNOWN INDICATION
     Route: 065
     Dates: start: 2005
  11. TYLENOL PM [Concomitant]
     Indication: DRUG USE FOR UNKNOWN INDICATION
     Route: 065
     Dates: start: 20080709, end: 20080711
  12. TYLENOL PM [Concomitant]
     Route: 065
     Dates: start: 20080709, end: 20080711
  13. APREPITANT [Concomitant]
     Indication: DRUG USE FOR UNKNOWN INDICATION
     Route: 065
     Dates: start: 20080708, end: 20080708
  14. APREPITANT [Concomitant]
     Route: 065
     Dates: start: 20080709
  15. APREPITANT [Concomitant]
     Route: 065
     Dates: start: 20080819, end: 20080819
  16. CLOXA [Concomitant]
     Indication: DRUG USE FOR UNKNOWN INDICATION
     Route: 065
     Dates: start: 20080709
  17. DECADRON [Concomitant]
     Indication: DRUG USE FOR UNKNOWN INDICATION
     Route: 065
     Dates: start: 20080709, end: 20080930
  18. PEPCID [Concomitant]
     Indication: DRUG USE FOR UNKNOWN INDICATION
     Route: 065
     Dates: start: 20080709
  19. VICODIN ES [Concomitant]
     Indication: DRUG USE FOR UNKNOWN INDICATION
     Route: 065
     Dates: start: 20080711

REACTIONS (18)
  - Pneumonitis [Recovered/Resolved]
  - Neutropenia [Recovered/Resolved]
  - Oesophageal candidiasis [Recovered/Resolved]
  - Hypokalaemia [Recovered/Resolved]
  - Asthma [Recovered/Resolved]
  - Staphylococcus test positive [None]
  - Bacterial test positive [None]
  - Haemoglobin decreased [None]
  - White blood cell count decreased [None]
  - Oropharyngeal pain [None]
  - Neutrophil count increased [None]
  - White blood cell count increased [None]
  - Neutrophil percentage increased [None]
  - Lactobacillus test positive [None]
  - Multiple allergies [None]
  - Gastrooesophageal reflux disease [None]
  - Blood pressure diastolic increased [None]
  - Body temperature decreased [None]
